FAERS Safety Report 21789768 (Version 7)
Quarter: 2023Q2

REPORT INFORMATION
  Report Type: Spontaneous
  Country: JP (occurrence: JP)
  Receive Date: 20221228
  Receipt Date: 20230607
  Transmission Date: 20230722
  Serious: Yes (Hospitalization)
  Sender: FDA-Public Use
  Company Number: JP-NBI-J202219377BIPI

PATIENT
  Age: 70 Year
  Sex: Female

DRUGS (1)
  1. OFEV [Suspect]
     Active Substance: NINTEDANIB
     Indication: Interstitial lung disease
     Route: 048
     Dates: start: 20221107

REACTIONS (23)
  - Pneumothorax [Recovered/Resolved]
  - Dyspnoea [Not Recovered/Not Resolved]
  - Nausea [Recovered/Resolved]
  - Nasopharyngitis [Recovered/Resolved]
  - Malaise [Not Recovered/Not Resolved]
  - Malaise [Not Recovered/Not Resolved]
  - Oxygen saturation decreased [Not Recovered/Not Resolved]
  - Heart rate abnormal [Not Recovered/Not Resolved]
  - Cough [Recovering/Resolving]
  - Myalgia [Unknown]
  - Blood pressure increased [Unknown]
  - Blood pressure increased [Not Recovered/Not Resolved]
  - Temporomandibular joint syndrome [Unknown]
  - Cough [Not Recovered/Not Resolved]
  - Dyspnoea [Not Recovered/Not Resolved]
  - Condition aggravated [Not Recovered/Not Resolved]
  - Nasal congestion [Not Recovered/Not Resolved]
  - Rhinorrhoea [Not Recovered/Not Resolved]
  - Dyspnoea [Recovering/Resolving]
  - Heart rate increased [Not Recovered/Not Resolved]
  - Dyspnoea [Not Recovered/Not Resolved]
  - Diarrhoea [Not Recovered/Not Resolved]
  - Constipation [Not Recovered/Not Resolved]

NARRATIVE: CASE EVENT DATE: 20221115
